FAERS Safety Report 6165491-7 (Version None)
Quarter: 2009Q2

REPORT INFORMATION
  Report Type: 
  Country: None (occurrence: None)
  Receive Date: 20090421
  Receipt Date: 20090421
  Transmission Date: 20091009
  Serious: Yes (Other)
  Sender: FDA-Public Use
  Company Number: None

PATIENT
  Age: 31 Year
  Sex: Female
  Weight: 65.7716 kg

DRUGS (1)
  1. MIRENA [Suspect]
     Indication: CONTRACEPTION
     Dosage: DAILY INTRA-UTERINE
     Route: 015
     Dates: start: 20090306, end: 20090416

REACTIONS (7)
  - BACK PAIN [None]
  - CONTRACEPTIVE DEVICE COMPLICATION [None]
  - EDUCATIONAL PROBLEM [None]
  - IMPAIRED WORK ABILITY [None]
  - INTERVERTEBRAL DISC DISORDER [None]
  - MENTAL DISORDER [None]
  - PARTNER STRESS [None]
